FAERS Safety Report 18362021 (Version 3)
Quarter: 2021Q1

REPORT INFORMATION
  Report Type: Report from Study
  Country: GB (occurrence: GB)
  Receive Date: 20201008
  Receipt Date: 20210106
  Transmission Date: 20210419
  Serious: Yes (Other)
  Sender: FDA-Public Use
  Company Number: GB-MYLANLABS-2020M1084790

PATIENT
  Age: 55 Year
  Sex: Female

DRUGS (30)
  1. CHLORHEXIDINE GLUCONATE. [Concomitant]
     Active Substance: CHLORHEXIDINE GLUCONATE
     Dosage: 10 MILLILITER, Q6H
     Route: 061
     Dates: start: 20170525
  2. CETIRIZINE [Concomitant]
     Active Substance: CETIRIZINE HYDROCHLORIDE
     Dosage: 10 MILLIGRAM, QD
     Route: 048
     Dates: start: 20190313
  3. AMITRIPTYLINE HYDROCHLORIDE. [Concomitant]
     Active Substance: AMITRIPTYLINE HYDROCHLORIDE
     Indication: DEPRESSED MOOD
     Dosage: 5 MILLIGRAM, QD
     Route: 048
     Dates: start: 20190827
  4. CHLORPHENAMINE [Concomitant]
     Active Substance: CHLORPHENIRAMINE MALEATE
     Dosage: 4 MILLIGRAM, Q6H
     Route: 048
     Dates: start: 20170526
  5. TRASTUZUMAB. [Suspect]
     Active Substance: TRASTUZUMAB
     Dosage: 525 MILLIGRAM (LOADING DOSE)
     Route: 042
     Dates: start: 20170524, end: 20170524
  6. PERTUZUMAB. [Suspect]
     Active Substance: PERTUZUMAB
     Dosage: 840 MILLIGRAM (LOADING DOSE)
     Route: 042
     Dates: start: 20170524, end: 20170524
  7. FUSIDIC ACID [Concomitant]
     Active Substance: FUSIDIC ACID
     Dosage: UNK
     Dates: start: 201905
  8. CLOBETASOL PROPIONATE. [Concomitant]
     Active Substance: CLOBETASOL PROPIONATE
     Dosage: UNK UNK, BID
     Route: 061
     Dates: start: 20170210
  9. DOMPERIDONE [Concomitant]
     Active Substance: DOMPERIDONE
     Dosage: 10 MILLIGRAM, TID
     Route: 048
     Dates: start: 20170523
  10. PACLITAXEL. [Suspect]
     Active Substance: PACLITAXEL
     Dosage: 450 MILLIGRAM, Q3W
     Route: 042
     Dates: start: 20170614, end: 20170614
  11. PARACETAMOL [Concomitant]
     Active Substance: ACETAMINOPHEN
     Dosage: 1 INTERNATIONAL UNIT
     Route: 048
     Dates: start: 20170525
  12. TINZAPARIN [Concomitant]
     Active Substance: TINZAPARIN
     Dosage: 12000 UNIT, QD
     Route: 058
     Dates: start: 20170713
  13. APIXABAN [Concomitant]
     Active Substance: APIXABAN
     Dosage: 2.5 MILLIGRAM, BID
     Route: 048
     Dates: start: 20190819, end: 20190917
  14. LANSOPRAZOLE. [Concomitant]
     Active Substance: LANSOPRAZOLE
     Dosage: 30 MILLIGRAM, QD
     Route: 048
     Dates: start: 20190730
  15. TRANEXAMIC ACID. [Concomitant]
     Active Substance: TRANEXAMIC ACID
     Dosage: UNK
     Dates: start: 20190722
  16. IKERVIS [Concomitant]
     Active Substance: CYCLOSPORINE
     Dosage: UNK
     Route: 047
     Dates: start: 201708
  17. TRASTUZUMAB. [Suspect]
     Active Substance: TRASTUZUMAB
     Indication: BREAST CANCER
     Dosage: 378 MILLIGRAM, Q3W
     Route: 042
     Dates: start: 20180516, end: 20190327
  18. CAPECITABINE. [Suspect]
     Active Substance: CAPECITABINE
     Indication: BREAST CANCER
     Dosage: 1300 MILLIGRAM
     Route: 048
     Dates: start: 20201020
  19. PACLITAXEL. [Suspect]
     Active Substance: PACLITAXEL
     Indication: BREAST CANCER
     Dosage: 300 MILLIGRAM, Q3W
     Route: 042
     Dates: start: 20170816, end: 20170906
  20. PACLITAXEL. [Suspect]
     Active Substance: PACLITAXEL
     Dosage: 375 MILLIGRAM, Q3W
     Route: 042
     Dates: start: 20170705, end: 20170726
  21. DOCETAXEL. [Suspect]
     Active Substance: DOCETAXEL
     Indication: BREAST CANCER
     Dosage: 130 MILLIGRAM, Q3W
     Route: 042
     Dates: start: 20170525, end: 20170525
  22. LOPERAMIDE [Concomitant]
     Active Substance: LOPERAMIDE
     Dosage: 2 MILLIGRAM, PRN (PRN (AS NEEDED))
     Route: 048
     Dates: start: 20170613
  23. TRASTUZUMAB. [Suspect]
     Active Substance: TRASTUZUMAB
     Dosage: 400 MILLIGRAM, Q3W
     Route: 042
     Dates: start: 20170614, end: 20180425
  24. CALCICHEW D3 FORTE [Concomitant]
     Active Substance: CALCIUM\CHOLECALCIFEROL
     Dosage: UNK UNK, Q8H
     Route: 048
     Dates: start: 20170525
  25. SANDO K                            /00209301/ [Concomitant]
     Active Substance: POTASSIUM BICARBONATE\POTASSIUM CHLORIDE
     Dosage: UNK UNK, BID
     Dates: start: 20170525
  26. TINZAPARIN [Concomitant]
     Active Substance: TINZAPARIN
     Dosage: 4500 INTERNATIONAL UNIT, QD
     Route: 058
     Dates: start: 20190918
  27. SALIVA SUBSTITUTE [Concomitant]
     Active Substance: CARBOXYMETHYLCELLULOSE SODIUM\DEVICE\SORBINICATE
     Dosage: UNK UNK, Q6H
     Route: 060
     Dates: start: 20170526
  28. ZOLEDRONIC ACID [Concomitant]
     Active Substance: ZOLEDRONIC ACID
     Dosage: 4 MILLIGRAM (EVERY 3?4 WEEKS)
     Route: 042
     Dates: start: 20170525
  29. PACLITAXEL. [Suspect]
     Active Substance: PACLITAXEL
     Dosage: 375 MILLIGRAM, Q3W
     Route: 042
     Dates: start: 20170705, end: 20170726
  30. PERTUZUMAB. [Suspect]
     Active Substance: PERTUZUMAB
     Indication: BREAST CANCER
     Dosage: 420 MILLIGRAM, Q3W
     Route: 042
     Dates: start: 20170614, end: 20190327

REACTIONS (3)
  - Biliary sepsis [Recovered/Resolved]
  - Device related infection [Not Recovered/Not Resolved]
  - Tenosynovitis [Recovered/Resolved]

NARRATIVE: CASE EVENT DATE: 20190604
